FAERS Safety Report 5165084-4 (Version None)
Quarter: 2006Q4

REPORT INFORMATION
  Report Type: 
  Country: None (occurrence: None)
  Receive Date: 20061205
  Receipt Date: 20061113
  Transmission Date: 20070319
  Serious: Yes (Hospitalization)
  Sender: FDA-Public Use
  Company Number: JP-ALLERGAN-0607365US

PATIENT
  Sex: Male

DRUGS (3)
  1. ALESION TABLET [Suspect]
     Indication: PSORIASIS
     Route: 048
     Dates: start: 20051018, end: 20051101
  2. FULMETA [Concomitant]
     Route: 061
     Dates: start: 20051019, end: 20051101
  3. DOVONEX [Concomitant]
     Indication: PSORIASIS
     Route: 061
     Dates: start: 20051019, end: 20051101

REACTIONS (9)
  - ARTHRALGIA [None]
  - C-REACTIVE PROTEIN INCREASED [None]
  - CYTOMEGALOVIRUS ANTIGEN POSITIVE [None]
  - DRUG ERUPTION [None]
  - HEPATIC FUNCTION ABNORMAL [None]
  - LYMPHOCYTE STIMULATION TEST POSITIVE [None]
  - PUSTULAR PSORIASIS [None]
  - PYREXIA [None]
  - WHITE BLOOD CELL COUNT INCREASED [None]
